FAERS Safety Report 9503512 (Version 1)
Quarter: 2013Q3

REPORT INFORMATION
  Report Type: Spontaneous
  Country: US (occurrence: US)
  Receive Date: 20130906
  Receipt Date: 20130906
  Transmission Date: 20140515
  Serious: No
  Sender: FDA-Public Use
  Company Number: US-BAYER-2013-107228

PATIENT
  Age: 66 Year
  Sex: Female
  Weight: 59 kg

DRUGS (7)
  1. CLIMARA [Suspect]
     Indication: HORMONE REPLACEMENT THERAPY
     Dosage: 0.075 MG/D, OW
     Route: 062
     Dates: start: 201301
  2. GABAPENTIN [Concomitant]
     Indication: SPINAL PAIN
     Dosage: 100 MG, TID
     Route: 048
     Dates: start: 201208
  3. DICLOFENAC [Concomitant]
     Indication: ARTHRITIS
     Dosage: 75 MG, BID
     Route: 048
     Dates: start: 2008
  4. LEVOTHYROXINE [Concomitant]
     Indication: HYPOTHYROIDISM
     Dosage: 75 ?G, ONCE
     Route: 048
     Dates: start: 200801
  5. LIOTHYRONINE [Concomitant]
     Indication: HYPOTHYROIDISM
     Dosage: 5 ?G, ONCE
     Route: 048
     Dates: start: 201201
  6. PAROXETINE [Concomitant]
     Indication: ANXIETY
     Dosage: 10 MG, ONCE
     Route: 048
     Dates: start: 200003
  7. ATORVASTATIN [Concomitant]
     Indication: BLOOD CHOLESTEROL ABNORMAL
     Dosage: 20 MG, ONCE
     Route: 048
     Dates: start: 201212

REACTIONS (2)
  - Skin irritation [Not Recovered/Not Resolved]
  - Application site hypersensitivity [Not Recovered/Not Resolved]
